FAERS Safety Report 24102961 (Version 1)
Quarter: 2024Q3

REPORT INFORMATION
  Report Type: Spontaneous
  Country: US (occurrence: US)
  Receive Date: 20240717
  Receipt Date: 20240717
  Transmission Date: 20241017
  Serious: Yes (Other)
  Sender: NOVO NORDISK
  Company Number: US-NOVOPROD-1254449

PATIENT
  Age: 62 Year
  Sex: Female

DRUGS (1)
  1. TRESIBA [Suspect]
     Active Substance: INSULIN DEGLUDEC
     Indication: Type 2 diabetes mellitus
     Dosage: 80 UNITS
     Route: 058
     Dates: start: 20240501

REACTIONS (2)
  - Eye operation [Recovered/Resolved]
  - Eye operation [Recovered/Resolved]

NARRATIVE: CASE EVENT DATE: 20240603
